FAERS Safety Report 25469402 (Version 2)
Quarter: 2025Q3

REPORT INFORMATION
  Report Type: Report from Study
  Country: US (occurrence: US)
  Receive Date: 20250623
  Receipt Date: 20250722
  Transmission Date: 20251020
  Serious: Yes (Hospitalization, Other)
  Sender: ALEXION PHARMACEUTICALS
  Company Number: US-AstraZeneca-CH-00895298A

PATIENT
  Age: 81 Year
  Sex: Male

DRUGS (1)
  1. ULTOMIRIS [Suspect]
     Active Substance: RAVULIZUMAB-CWVZ
     Indication: Myasthenia gravis
     Route: 065

REACTIONS (9)
  - Blindness unilateral [Unknown]
  - Chills [Unknown]
  - Gait inability [Unknown]
  - Illness [Unknown]
  - Tremor [Unknown]
  - Diarrhoea [Unknown]
  - Muscle twitching [Unknown]
  - Blepharospasm [Unknown]
  - Therapeutic response shortened [Unknown]

NARRATIVE: CASE EVENT DATE: 20240801
